FAERS Safety Report 8471475 (Version 2)
Quarter: 2012Q4

REPORT INFORMATION
  Report Type: 
  Country: FR (occurrence: FR)
  Receive Date: 20120322
  Receipt Date: 20120918
  Transmission Date: 20130627
  Serious: Yes (Other)
  Sender: FDA-Public Use
  Company Number: FR-AMGEN-FRASP2012016842

PATIENT
  Age: 42 Year
  Sex: Female
  Weight: 65 kg

DRUGS (2)
  1. ENBREL [Suspect]
     Indication: PSORIATIC ARTHROPATHY
     Dosage: UNK
     Dates: start: 200512, end: 201202
  2. NAPROSYNE [Concomitant]
     Indication: PSORIATIC ARTHROPATHY
     Dosage: 500 mg, 2x/day
     Route: 048
     Dates: start: 20101212

REACTIONS (2)
  - Vitreous haemorrhage [Recovered/Resolved]
  - Headache [Recovered/Resolved]
